FAERS Safety Report 16407329 (Version 1)
Quarter: 2019Q2

REPORT INFORMATION
  Report Type: Spontaneous
  Country: US (occurrence: US)
  Receive Date: 20190608
  Receipt Date: 20190608
  Transmission Date: 20190711
  Serious: No
  Sender: FDA-Public Use
  Company Number: US-TEVA-2019-US-1050207

PATIENT
  Sex: Female
  Weight: 81.6 kg

DRUGS (2)
  1. PRAVASTATIN. [Suspect]
     Active Substance: PRAVASTATIN
     Indication: BLOOD CHOLESTEROL INCREASED
     Dosage: 1 A DAY IN EVENING
     Route: 048
  2. PRAVASTATIN. [Suspect]
     Active Substance: PRAVASTATIN
     Dosage: 1 A DAY IN EVENING
     Route: 048
     Dates: start: 20190224

REACTIONS (4)
  - Drug hypersensitivity [Unknown]
  - Erythema [Unknown]
  - Allergic reaction to excipient [Unknown]
  - Pruritus [Unknown]
